FAERS Safety Report 4758625-X (Version None)
Quarter: 2005Q3

REPORT INFORMATION
  Report Type: 
  Country: None (occurrence: None)
  Receive Date: 20050826
  Receipt Date: 20050810
  Transmission Date: 20060218
  Serious: Yes (Hospitalization, Other)
  Sender: FDA-Public Use
  Company Number: US146147

PATIENT
  Age: 59 Year
  Sex: Female

DRUGS (3)
  1. ARANESP [Suspect]
     Indication: ANAEMIA
     Dosage: 300 MCG, 1 IN 2 WEEKS, SC
     Route: 058
     Dates: start: 20030521
  2. AZATHIOPRINE [Concomitant]
  3. BLOOD CELLS, PACKED HUMAN [Concomitant]

REACTIONS (9)
  - ANTI-ERYTHROPOIETIN ANTIBODY [None]
  - APLASIA PURE RED CELL [None]
  - BLOOD ERYTHROPOIETIN INCREASED [None]
  - BONE MARROW DEPRESSION [None]
  - HAEMOGLOBIN DECREASED [None]
  - LUNG NEOPLASM [None]
  - PARVOVIRUS B19 SEROLOGY POSITIVE [None]
  - PARVOVIRUS INFECTION [None]
  - THERAPEUTIC RESPONSE DECREASED [None]
